FAERS Safety Report 15702166 (Version 1)
Quarter: 2018Q4

REPORT INFORMATION
  Report Type: Report from Study
  Country: None (occurrence: FI)
  Receive Date: 20181209
  Receipt Date: 20181209
  Transmission Date: 20190205
  Serious: Yes (Hospitalization)
  Sender: FDA-Public Use
  Company Number: FI-ABBVIE-18S-055-2577322-00

PATIENT
  Sex: Female

DRUGS (1)
  1. DUODOPA [Suspect]
     Active Substance: CARBIDOPA\LEVODOPA
     Indication: PARKINSON^S DISEASE
     Dosage: MD 8 ML; CD DAY 4.1 ML; CD NIGHT 3.6 ML; ED 1.5 ML; 24 H TREATMENT
     Route: 050
     Dates: start: 20141001

REACTIONS (4)
  - Limb injury [Recovered/Resolved]
  - Pneumonia [Recovered/Resolved]
  - Device alarm issue [Unknown]
  - Device issue [Recovered/Resolved]

NARRATIVE: CASE EVENT DATE: 2018
